FAERS Safety Report 9959697 (Version 1)
Quarter: 2014Q1

REPORT INFORMATION
  Report Type: Spontaneous
  Country: US (occurrence: None)
  Receive Date: 20140228
  Receipt Date: 20140228
  Transmission Date: 20141002
  Serious: Yes (Life-Threatening)
  Sender: FDA-Public Use
  Company Number: None

PATIENT
  Age: 77 Year
  Sex: Female
  Weight: 63.87 kg

DRUGS (1)
  1. NUEDEXTA [Suspect]
     Dosage: 1 CAPSULE Q12HOURS PO
     Route: 048
     Dates: start: 20140221, end: 20140224

REACTIONS (2)
  - Tachycardia [None]
  - Ventricular tachycardia [None]
